FAERS Safety Report 23645429 (Version 5)
Quarter: 2024Q3

REPORT INFORMATION
  Report Type: Spontaneous
  Country: JP (occurrence: JP)
  Receive Date: 20240318
  Receipt Date: 20240919
  Transmission Date: 20241017
  Serious: Yes (Death, Life-Threatening, Hospitalization, Other)
  Sender: BRISTOL MYERS SQUIBB
  Company Number: JP-BRISTOL-MYERS SQUIBB COMPANY-2024-041144

PATIENT
  Age: 69 Year
  Sex: Male
  Weight: 41.5 kg

DRUGS (2)
  1. YERVOY [Suspect]
     Active Substance: IPILIMUMAB
     Indication: Non-small cell lung cancer
     Dosage: 1 TIME
     Route: 041
     Dates: start: 20230927, end: 20230927
  2. OPDIVO [Suspect]
     Active Substance: NIVOLUMAB
     Indication: Non-small cell lung cancer
     Dosage: 1 TIME
     Route: 041
     Dates: start: 20230927, end: 20230927

REACTIONS (7)
  - Colitis ulcerative [Fatal]
  - Renal failure [Recovering/Resolving]
  - Cytokine release syndrome [Recovering/Resolving]
  - Disseminated intravascular coagulation [Fatal]
  - Dermatitis [Not Recovered/Not Resolved]
  - Multiple organ dysfunction syndrome [Fatal]
  - Enteritis [Fatal]

NARRATIVE: CASE EVENT DATE: 20231012
